FAERS Safety Report 20421132 (Version 1)
Quarter: 2022Q1

REPORT INFORMATION
  Report Type: Spontaneous
  Country: US (occurrence: US)
  Receive Date: 20220203
  Receipt Date: 20220203
  Transmission Date: 20220424
  Serious: No
  Sender: FDA-Public Use
  Company Number: US-LANNETT COMPANY, INC.-US-2021LAN000355

PATIENT
  Age: 61 Year
  Sex: Female

DRUGS (1)
  1. DOXEPIN HYDROCHLORIDE [Suspect]
     Active Substance: DOXEPIN HYDROCHLORIDE
     Indication: Product used for unknown indication
     Dosage: 10 MG, UNK
     Route: 048
     Dates: start: 202110

REACTIONS (4)
  - Unevaluable event [Unknown]
  - Palpitations [Unknown]
  - Dysgeusia [Unknown]
  - Nervousness [Unknown]

NARRATIVE: CASE EVENT DATE: 20211001
